FAERS Safety Report 25671793 (Version 1)
Quarter: 2025Q3

REPORT INFORMATION
  Report Type: Spontaneous
  Country: GB (occurrence: GB)
  Receive Date: 20250812
  Receipt Date: 20250812
  Transmission Date: 20251020
  Serious: Yes (Death)
  Sender: AMGEN
  Company Number: GB-AMGEN-GBRSP2025157223

PATIENT
  Age: 55 Year
  Sex: Male

DRUGS (1)
  1. ARANESP [Suspect]
     Active Substance: DARBEPOETIN ALFA
     Indication: Product used for unknown indication
     Dosage: 80 MICROGRAM/0.4 ML, Q4WK (PFS 4)
     Route: 058
     Dates: end: 20250801

REACTIONS (1)
  - Death [Fatal]

NARRATIVE: CASE EVENT DATE: 20250801
